FAERS Safety Report 18345679 (Version 1)
Quarter: 2020Q4

REPORT INFORMATION
  Report Type: Report from Study
  Country: US (occurrence: US)
  Receive Date: 20201005
  Receipt Date: 20201005
  Transmission Date: 20210114
  Serious: Yes (Death)
  Sender: FDA-Public Use
  Company Number: US-ASTRAZENECA-2020SF27409

PATIENT
  Age: 74 Year
  Sex: Male

DRUGS (6)
  1. TAGRISSO [Suspect]
     Active Substance: OSIMERTINIB
     Indication: NON-SMALL CELL LUNG CANCER
     Route: 048
     Dates: start: 20190322
  2. LIPITOR [Concomitant]
     Active Substance: ATORVASTATIN CALCIUM
  3. CALCIUM [Concomitant]
     Active Substance: CALCIUM
  4. LOSARTAN. [Concomitant]
     Active Substance: LOSARTAN
  5. FOLIC ACID. [Concomitant]
     Active Substance: FOLIC ACID
  6. COREG [Concomitant]
     Active Substance: CARVEDILOL

REACTIONS (1)
  - Death [Fatal]

NARRATIVE: CASE EVENT DATE: 20200916
